FAERS Safety Report 10880683 (Version 1)
Quarter: 2015Q1

REPORT INFORMATION
  Report Type: Report from Study
  Country: US (occurrence: None)
  Receive Date: 20150225
  Receipt Date: 20150225
  Transmission Date: 20150721
  Serious: Yes (Life-Threatening)
  Sender: FDA-Public Use
  Company Number: 2751056

PATIENT
  Age: 48 Year
  Sex: Male
  Weight: 70.9 kg

DRUGS (3)
  1. PEGFILGRASTIM [Concomitant]
     Active Substance: PEGFILGRASTIM
  2. FLUDARABINE PHOSPHATE. [Suspect]
     Active Substance: FLUDARABINE PHOSPHATE
     Indication: ACUTE LYMPHOCYTIC LEUKAEMIA
     Dosage: 30 MG/M2 MILLIGRAM(S)/SQ. METER (CYCLICAL)
     Route: 042
     Dates: start: 20140903, end: 20140907
  3. CYTARABINE INJECTION (CYTARABINE) [Suspect]
     Active Substance: CYTARABINE
     Indication: ACUTE LYMPHOCYTIC LEUKAEMIA
     Dosage: 12 G/M^2 (CYCLICAL) INTRAVENOUS
     Route: 042
     Dates: start: 20140902, end: 20140907

REACTIONS (4)
  - Escherichia sepsis [None]
  - Diarrhoea [None]
  - Dyspnoea [None]
  - Hypotension [None]

NARRATIVE: CASE EVENT DATE: 20140915
